FAERS Safety Report 14433807 (Version 4)
Quarter: 2018Q1

REPORT INFORMATION
  Report Type: Report from Study
  Country: US (occurrence: US)
  Receive Date: 20180124
  Receipt Date: 20180214
  Transmission Date: 20180509
  Serious: Yes (Hospitalization)
  Sender: FDA-Public Use
  Company Number: US-ACTELION-A-NJ2017-164644

PATIENT
  Age: 74 Year
  Sex: Female
  Weight: 67.12 kg

DRUGS (7)
  1. OPSUMIT [Suspect]
     Active Substance: MACITENTAN
     Indication: PULMONARY ARTERIAL HYPERTENSION
     Dosage: 10 MG, QD
     Route: 048
  2. WARFARIN [Concomitant]
     Active Substance: WARFARIN
  3. REMODULIN [Suspect]
     Active Substance: TREPROSTINIL
     Dosage: UNK
     Route: 042
  4. OXYGEN. [Concomitant]
     Active Substance: OXYGEN
  5. TYVASO [Concomitant]
     Active Substance: TREPROSTINIL
  6. REMODULIN [Suspect]
     Active Substance: TREPROSTINIL
     Indication: PRODUCT USED FOR UNKNOWN INDICATION
     Dosage: UNK
     Route: 058
  7. ADCIRCA [Concomitant]
     Active Substance: TADALAFIL

REACTIONS (19)
  - Vomiting [Recovering/Resolving]
  - Therapy non-responder [Unknown]
  - Oedema [Unknown]
  - Unevaluable event [Unknown]
  - Diarrhoea [Unknown]
  - Dizziness [Unknown]
  - Pain in extremity [Recovering/Resolving]
  - Muscle spasms [Unknown]
  - Bone pain [Unknown]
  - Vertigo [Recovering/Resolving]
  - Discomfort [Unknown]
  - Pain [Unknown]
  - Cough [Unknown]
  - Fluid overload [Unknown]
  - Pain in jaw [Recovering/Resolving]
  - Nausea [Unknown]
  - Headache [Unknown]
  - Asthenia [Unknown]
  - Infusion site pain [Unknown]
